FAERS Safety Report 14703228 (Version 2)
Quarter: 2020Q3

REPORT INFORMATION
  Report Type: Spontaneous
  Country: IN (occurrence: IN)
  Receive Date: 20180402
  Receipt Date: 20180621
  Transmission Date: 20201104
  Serious: Yes (Other)
  Sender: FDA-Public Use
  Company Number: IR-ALKEM LABORATORIES LIMITED-IN-ALKEM-2018-01752

PATIENT
  Age: 61 Year
  Sex: Male

DRUGS (6)
  1. METRONIDAZOLE. [Concomitant]
     Active Substance: METRONIDAZOLE
     Indication: NECROTISING SOFT TISSUE INFECTION
     Dosage: UNK
     Route: 048
  2. COTRIMOXAZOLE [Suspect]
     Active Substance: SULFAMETHOXAZOLE\TRIMETHOPRIM
     Indication: NECROTISING SOFT TISSUE INFECTION
     Route: 048
  3. COLISTIN [Concomitant]
     Active Substance: COLISTIN
     Indication: NECROTISING SOFT TISSUE INFECTION
     Dosage: UNK
     Route: 065
  4. CO?AMOXICLAV [Concomitant]
     Active Substance: AMOXICILLIN\CLAVULANATE POTASSIUM
     Indication: NECROTISING SOFT TISSUE INFECTION
     Route: 065
  5. AMIKACIN. [Suspect]
     Active Substance: AMIKACIN
     Indication: NECROTISING SOFT TISSUE INFECTION
     Dosage: UNK
     Route: 065
  6. LINEZOLID. [Suspect]
     Active Substance: LINEZOLID
     Indication: NECROTISING SOFT TISSUE INFECTION
     Dosage: UNK
     Route: 048

REACTIONS (1)
  - Drug resistance [Unknown]
